FAERS Safety Report 7654827-3 (Version None)
Quarter: 2011Q3

REPORT INFORMATION
  Report Type: 
  Country: None (occurrence: None)
  Receive Date: 20110728
  Receipt Date: 20110713
  Transmission Date: 20111222
  Serious: Yes (Hospitalization)
  Sender: FDA-Public Use
  Company Number: 2011MA009018

PATIENT
  Age: 28 Year
  Sex: Male

DRUGS (5)
  1. FEVERALL [Suspect]
     Indication: PAIN
     Dosage: 1 GM, QID, PO
     Route: 048
     Dates: start: 20060701, end: 20060706
  2. CITALOPRAM HYDROBROMIDE [Concomitant]
  3. DICLOFENAC SODIUM [Suspect]
     Indication: GOUT
     Dosage: 50 MG, QD, PO
     Route: 048
     Dates: start: 20060701, end: 20060706
  4. ALLOPURINOL [Concomitant]
  5. ALCOHOL [Concomitant]

REACTIONS (10)
  - HAEMOCHROMATOSIS [None]
  - HEPATITIS ACUTE [None]
  - CONJUNCTIVAL HAEMORRHAGE [None]
  - LIVER FUNCTION TEST ABNORMAL [None]
  - VOMITING [None]
  - ISCHAEMIA [None]
  - ACUTE LEUKAEMIA [None]
  - ACUTE HEPATIC FAILURE [None]
  - THROMBOSIS [None]
  - VIRAL INFECTION [None]
